FAERS Safety Report 8814562 (Version 2)
Quarter: 2012Q4

REPORT INFORMATION
  Report Type: 
  Country: US (occurrence: US)
  Receive Date: 20120928
  Receipt Date: 20121121
  Transmission Date: 20130627
  Serious: Yes (Other)
  Sender: FDA-Public Use
  Company Number: US-ASTELLAS-2012US008019

PATIENT
  Age: 59 Year
  Sex: Male
  Weight: 68 kg

DRUGS (7)
  1. PROGRAF [Suspect]
     Indication: LIVER TRANSPLANT
     Dosage: 7 mg, UID/QD
     Route: 048
     Dates: start: 2005
  2. PROGRAF [Suspect]
     Dosage: 3 mg, bid
     Route: 048
     Dates: start: 20120127
  3. PROGRAF [Suspect]
     Dosage: UNK
     Route: 065
     Dates: start: 20111124
  4. ATIVAN [Concomitant]
     Indication: PRODUCT USED FOR UNKNOWN INDICATION
     Dosage: 1 mg, tid
     Route: 065
     Dates: start: 20111124
  5. CATAPRES                           /00171101/ [Concomitant]
     Indication: PRODUCT USED FOR UNKNOWN INDICATION
     Dosage: 0.3 mg, Weekly
     Route: 065
     Dates: start: 20090112
  6. OSCAL                              /00514701/ [Concomitant]
     Indication: PRODUCT USED FOR UNKNOWN INDICATION
     Dosage: 500 mg, bid
     Route: 065
     Dates: start: 20111124
  7. SEPTRA [Concomitant]
     Indication: PRODUCT USED FOR UNKNOWN INDICATION
     Dosage: 400 mg, 3xWeekly
     Route: 065
     Dates: start: 20111124

REACTIONS (1)
  - Renal transplant [Recovered/Resolved]
